FAERS Safety Report 25140117 (Version 1)
Quarter: 2025Q1

REPORT INFORMATION
  Report Type: Report from Study
  Country: CN (occurrence: CN)
  Receive Date: 20250331
  Receipt Date: 20250331
  Transmission Date: 20250409
  Serious: Yes (Other)
  Sender: Vantive US Healthcare
  Company Number: CN-VANTIVE-2025VAN001487

PATIENT
  Age: 48 Year
  Sex: Male
  Weight: 68 kg

DRUGS (3)
  1. SODIUM CHLORIDE\SODIUM CITRATE, UNSPECIFIED FORM [Suspect]
     Active Substance: SODIUM CHLORIDE\SODIUM CITRATE, UNSPECIFIED FORM
     Indication: Pancreatitis necrotising
     Route: 042
  2. MAGNESIUM CHLORIDE\POTASSIUM CHLORIDE\SODIUM BICARBONATE\SODIUM CHLORI [Suspect]
     Active Substance: MAGNESIUM CHLORIDE\POTASSIUM CHLORIDE\SODIUM BICARBONATE\SODIUM CHLORIDE\SODIUM PHOSPHATE, DIBASIC
     Indication: Pancreatitis necrotising
     Route: 041
  3. UNSPECIFIED INGREDIENT [Suspect]
     Active Substance: UNSPECIFIED INGREDIENT
     Route: 065

REACTIONS (4)
  - Hypoxia [Not Recovered/Not Resolved]
  - Hypokalaemia [Not Recovered/Not Resolved]
  - Anaemia [Not Recovered/Not Resolved]
  - Hypocalcaemia [Not Recovered/Not Resolved]

NARRATIVE: CASE EVENT DATE: 20250304
